FAERS Safety Report 6475164-9 (Version None)
Quarter: 2009Q4

REPORT INFORMATION
  Report Type: 
  Country: None (occurrence: None)
  Receive Date: 20091204
  Receipt Date: 20090721
  Transmission Date: 20100525
  Serious: Yes (Hospitalization)
  Sender: FDA-Public Use
  Company Number: US-ELI_LILLY_AND_COMPANY-US200904001145

PATIENT
  Sex: Female

DRUGS (14)
  1. HUMULIN R [Suspect]
     Indication: TYPE 2 DIABETES MELLITUS
     Dosage: 3 U, EACH MORNING
     Dates: start: 19890101
  2. HUMULIN R [Suspect]
     Dosage: 7 U, EACH EVENING
     Dates: start: 19890101
  3. HUMULIN N [Suspect]
     Indication: TYPE 2 DIABETES MELLITUS
     Dosage: 42 U, EACH MORNING
     Dates: start: 19890101
  4. HUMULIN N [Suspect]
     Dosage: 20 U, EACH EVENING
     Dates: start: 19890101
  5. ATENOLOL [Concomitant]
  6. LASIX [Concomitant]
  7. IMDUR [Concomitant]
  8. APRESOLINE [Concomitant]
  9. CALTRATE [Concomitant]
  10. MULTI-VITAMIN [Concomitant]
  11. TRICOR [Concomitant]
  12. LISINOPRIL [Concomitant]
  13. ZOCOR [Concomitant]
  14. COUMADIN [Concomitant]

REACTIONS (4)
  - ARTHRALGIA [None]
  - BLOOD GLUCOSE INCREASED [None]
  - FOOT DEFORMITY [None]
  - ROTATOR CUFF SYNDROME [None]
